FAERS Safety Report 6119915-1 (Version None)
Quarter: 2009Q1

REPORT INFORMATION
  Report Type: 
  Country: None (occurrence: None)
  Receive Date: 20090316
  Receipt Date: 20090304
  Transmission Date: 20090719
  Serious: Yes (Other)
  Sender: FDA-Public Use
  Company Number: PHHY2009DE08888

PATIENT
  Sex: Female

DRUGS (11)
  1. LEPONEX [Suspect]
     Indication: SCHIZOAFFECTIVE DISORDER
     Dosage: 150MG PER DAY
     Route: 048
     Dates: start: 20081114
  2. LEPONEX [Suspect]
     Dosage: 12.5MG TO 200MG PER DAY
     Route: 048
     Dates: end: 20080914
  3. LEPONEX [Suspect]
     Dosage: 200MG PER DAY
     Route: 048
     Dates: start: 20080915, end: 20080930
  4. LEPONEX [Suspect]
     Dosage: 175MG PER DAY
     Route: 048
     Dates: start: 20081001, end: 20081015
  5. LEPONEX [Suspect]
     Dosage: 225MG PER DAY
     Route: 048
     Dates: start: 20081016, end: 20081021
  6. LEPONEX [Suspect]
     Dosage: 250MG PER DAY
     Route: 048
     Dates: start: 20081022, end: 20081029
  7. LEPONEX [Suspect]
     Dosage: 225MG PER DAY
     Route: 048
     Dates: start: 20081030, end: 20081107
  8. LEPONEX [Suspect]
     Dosage: 150MG PER DAY
     Route: 048
     Dates: start: 20081108, end: 20081113
  9. FLUCTIN [Suspect]
     Dosage: 40MG PER DAY
     Route: 048
     Dates: end: 20080909
  10. FLUCTIN [Suspect]
     Dosage: 20MG PER DAY
     Route: 048
     Dates: start: 20080910, end: 20080923
  11. FLUCTIN [Suspect]
     Dosage: 30MG PER DAY
     Route: 048
     Dates: start: 20080924, end: 20081022

REACTIONS (10)
  - ASTHENIA [None]
  - C-REACTIVE PROTEIN INCREASED [None]
  - DRUG INTERACTION [None]
  - DRUG TOXICITY [None]
  - DYSPNOEA [None]
  - INFECTION [None]
  - PALPITATIONS [None]
  - SEDATION [None]
  - SINUS TACHYCARDIA [None]
  - TOOTH ABSCESS [None]
